FAERS Safety Report 9361101 (Version 2)
Quarter: 2013Q3

REPORT INFORMATION
  Report Type: Spontaneous
  Country: US (occurrence: None)
  Receive Date: 20130618
  Receipt Date: 20130703
  Transmission Date: 20140515
  Serious: Yes (Congenital Anomaly)
  Sender: FDA-Public Use
  Company Number: US-TORRENT-00000624

PATIENT
  Age: 77 Year
  Sex: Female
  Weight: 63.5 kg

DRUGS (7)
  1. ISOSORBIDE MONONITRATE [Suspect]
     Dosage: 1 TABLET DAILY UNTIL APRIL HEART ATTACK THEN 1/2 TABLET DAILY.
     Dates: start: 20130421, end: 20130426
  2. PLAVIX [Concomitant]
  3. SIMVASTATIN [Concomitant]
  4. NU-IRON [Concomitant]
  5. CALCIUM [Concomitant]
  6. ALENDRONATE [Concomitant]
  7. OMEGA 3 [Concomitant]

REACTIONS (5)
  - Heart rate increased [None]
  - Myocardial infarction [None]
  - Palpitations [None]
  - Asthenia [None]
  - Haemoglobin decreased [None]
